FAERS Safety Report 5443431-3 (Version None)
Quarter: 2007Q3

REPORT INFORMATION
  Report Type: 
  Country: None (occurrence: None)
  Receive Date: 20070905
  Receipt Date: 20070823
  Transmission Date: 20080115
  Serious: Yes (Other)
  Sender: FDA-Public Use
  Company Number: B0485383A

PATIENT
  Age: 46 Year
  Sex: Male

DRUGS (3)
  1. ABACAVIR [Suspect]
     Indication: HIV INFECTION
     Route: 065
  2. AMPRENAVIR [Suspect]
     Indication: HIV INFECTION
     Route: 065
  3. STAVUDINE [Suspect]
     Indication: HIV INFECTION
     Route: 065

REACTIONS (1)
  - NEUROPATHY [None]
